FAERS Safety Report 11674356 (Version 1)
Quarter: 2015Q4

REPORT INFORMATION
  Report Type: Spontaneous
  Country: US (occurrence: US)
  Receive Date: 20151028
  Receipt Date: 20151028
  Transmission Date: 20160304
  Serious: No
  Sender: FDA-Public Use
  Company Number: US-PFIZER INC-2015358991

PATIENT
  Age: 38 Year
  Sex: Male

DRUGS (6)
  1. TIROSINT [Suspect]
     Active Substance: LEVOTHYROXINE SODIUM
     Indication: THYROIDECTOMY
     Dosage: 200 ?G, DAILY
     Route: 048
     Dates: start: 20150129, end: 20150318
  2. TIROSINT [Suspect]
     Active Substance: LEVOTHYROXINE SODIUM
     Dosage: 200 ?G, DAILY
     Dates: start: 20150717
  3. VITAMINS [Concomitant]
     Active Substance: VITAMINS
     Dosage: UNK
  4. TIROSINT [Suspect]
     Active Substance: LEVOTHYROXINE SODIUM
     Dosage: 137 ?G, 3 DAYS/WEEK; 150 ?G, 4 DAYS/WEEK
     Route: 048
     Dates: start: 20150318, end: 20150717
  5. CYTOMEL [Suspect]
     Active Substance: LIOTHYRONINE SODIUM
     Dosage: 5 ?G, DAILY
     Route: 048
     Dates: start: 20150129, end: 20150717
  6. ALPRAZOLAM. [Concomitant]
     Active Substance: ALPRAZOLAM
     Indication: ANXIETY
     Dosage: UNK UNK, 3X/DAY

REACTIONS (17)
  - Pruritus [Unknown]
  - Overdose [Unknown]
  - Thyroid hormones increased [Unknown]
  - Feeling abnormal [Unknown]
  - Hypertension [Unknown]
  - Fall [Unknown]
  - Photopsia [Unknown]
  - Peripheral swelling [Unknown]
  - Joint swelling [Unknown]
  - Impaired self-care [Unknown]
  - Diarrhoea [Unknown]
  - Insomnia [Unknown]
  - Muscle spasms [Unknown]
  - Panic attack [Unknown]
  - Hypoaesthesia [Unknown]
  - Mobility decreased [Unknown]
  - Loss of employment [Unknown]

NARRATIVE: CASE EVENT DATE: 201508
